FAERS Safety Report 8878778 (Version 1)
Quarter: 2012Q4

REPORT INFORMATION
  Report Type: Report from Study
  Country: TR (occurrence: TR)
  Receive Date: 20121026
  Receipt Date: 20121026
  Transmission Date: 20130627
  Serious: Yes (Hospitalization)
  Sender: FDA-Public Use
  Company Number: PHHY2012TR096289

PATIENT
  Age: 56 Year
  Sex: Male
  Weight: 52 kg

DRUGS (2)
  1. AFINITOR [Suspect]
     Indication: RENAL CELL CARCINOMA
     Dosage: 5 mg, daily
     Dates: start: 20120816, end: 20120826
  2. AFINITOR [Suspect]
     Dosage: 5 mg, UNK
     Dates: start: 20120918, end: 20120925

REACTIONS (2)
  - General physical health deterioration [Not Recovered/Not Resolved]
  - Eastern Cooperative Oncology Group performance status worsened [Not Recovered/Not Resolved]
